FAERS Safety Report 6738850-9 (Version None)
Quarter: 2010Q2

REPORT INFORMATION
  Report Type: 
  Country: None (occurrence: None)
  Receive Date: 20100524
  Receipt Date: 20100512
  Transmission Date: 20101027
  Serious: Yes (Hospitalization, Other)
  Sender: FDA-Public Use
  Company Number: PHHY2010GR03916

PATIENT
  Sex: Female
  Weight: 71 kg

DRUGS (8)
  1. ICL670A ICL+DISTAB [Suspect]
     Indication: THALASSAEMIA BETA
     Dosage: 1750MG DAILY
     Route: 048
     Dates: start: 20090901, end: 20100125
  2. SALOSPIR [Concomitant]
     Indication: SPLENECTOMY
     Dosage: 100 MG PER DAY
     Dates: start: 20060101, end: 20100306
  3. T4 [Concomitant]
  4. GLUCOPHAGE [Concomitant]
  5. YASMIN [Concomitant]
  6. ZESTRIL [Concomitant]
  7. CALCIORAL [Concomitant]
  8. FILICINE [Concomitant]

REACTIONS (10)
  - ABDOMINAL PAIN UPPER [None]
  - ASCITES [None]
  - CHEMICAL PERITONITIS [None]
  - CHOLECYSTECTOMY [None]
  - GASTRIC ULCER [None]
  - GASTRIC ULCER PERFORATION [None]
  - MUSCULOSKELETAL PAIN [None]
  - PELVIC FLUID COLLECTION [None]
  - PERITONEAL DISORDER [None]
  - SURGERY [None]
